FAERS Safety Report 22250913 (Version 1)
Quarter: 2023Q2

REPORT INFORMATION
  Report Type: Spontaneous
  Country: US (occurrence: None)
  Receive Date: 20230425
  Receipt Date: 20230425
  Transmission Date: 20230722
  Serious: No
  Sender: FDA-Public Use
  Company Number: 2023A078819

PATIENT
  Age: 25139 Day
  Sex: Female

DRUGS (1)
  1. SYMBICORT [Suspect]
     Active Substance: BUDESONIDE\FORMOTEROL FUMARATE DIHYDRATE
     Indication: Respiratory tract infection
     Dosage: 80MCG/4.5MCG VIA INHALATION, 2 INHALATIONS TWICE DAILY
     Route: 055
     Dates: start: 20230329

REACTIONS (7)
  - Cough [Unknown]
  - Ageusia [Unknown]
  - Product use issue [Unknown]
  - Device malfunction [Unknown]
  - Wrong technique in device usage process [Unknown]
  - Intentional product misuse [Unknown]
  - Product prescribing issue [Unknown]

NARRATIVE: CASE EVENT DATE: 20230329
